FAERS Safety Report 8373273-0 (Version None)
Quarter: 2012Q2

REPORT INFORMATION
  Report Type: 
  Country: None (occurrence: None)
  Receive Date: 20120521
  Receipt Date: 20120508
  Transmission Date: 20120825
  Serious: Yes (Hospitalization)
  Sender: FDA-Public Use
  Company Number: DE-ASTRAZENECA-2012SE31527

PATIENT
  Age: 6 Month
  Sex: Male
  Weight: 5 kg

DRUGS (1)
  1. SYNAGIS [Suspect]
     Indication: ANTIVIRAL PROPHYLAXIS
     Route: 030
     Dates: start: 20110924

REACTIONS (3)
  - RESPIRATORY FAILURE [None]
  - PNEUMONIA [None]
  - RESPIRATORY SYNCYTIAL VIRUS BRONCHIOLITIS [None]
